FAERS Safety Report 8234015-2 (Version None)
Quarter: 2012Q1

REPORT INFORMATION
  Report Type: 
  Country: None (occurrence: None)
  Receive Date: 20120326
  Receipt Date: 20120322
  Transmission Date: 20120608
  Serious: Yes (Hospitalization, Other)
  Sender: FDA-Public Use
  Company Number: US-B.I. PHARMACEUTICALS,INC./RIDGEFIELD-2012-BP-05407BP

PATIENT
  Sex: Female

DRUGS (4)
  1. NEBULIZER [Suspect]
     Indication: CHRONIC OBSTRUCTIVE PULMONARY DISEASE
  2. ADVAIR DISKUS 100/50 [Suspect]
     Indication: CHRONIC OBSTRUCTIVE PULMONARY DISEASE
     Dates: start: 20070101
  3. SPIRIVA [Suspect]
     Indication: CHRONIC OBSTRUCTIVE PULMONARY DISEASE
     Route: 065
     Dates: start: 20070101
  4. COMBIVENT [Concomitant]

REACTIONS (5)
  - DRUG INEFFECTIVE [None]
  - CATARACT [None]
  - DYSPNOEA [None]
  - OSTEOPOROSIS [None]
  - ATELECTASIS [None]
